FAERS Safety Report 21548524 (Version 1)
Quarter: 2022Q4

REPORT INFORMATION
  Report Type: Spontaneous
  Country: NL (occurrence: NL)
  Receive Date: 20221103
  Receipt Date: 20221103
  Transmission Date: 20230113
  Serious: Yes (Other)
  Sender: FDA-Public Use
  Company Number: None

PATIENT
  Sex: Male
  Weight: 65 kg

DRUGS (2)
  1. METOPROLOL TARTRATE [Suspect]
     Active Substance: METOPROLOL TARTRATE
     Indication: Cardiac disorder
     Dosage: UNKNOWN , BRAND NAME NOT SPECIFIED, THERAPY END DATE : ASKU
     Route: 065
     Dates: start: 20170309
  2. SIMVASTATIN [Concomitant]
     Active Substance: SIMVASTATIN
     Indication: Product used for unknown indication
     Dosage: UNKNOWN, STRENGTH : 10MG / BRAND NAME NOT SPECIFIED, THERAPY START DATE : ASKU , THERAPY END DATE :

REACTIONS (1)
  - Arrhythmia [Not Recovered/Not Resolved]
